FAERS Safety Report 22590150 (Version 1)
Quarter: 2023Q2

REPORT INFORMATION
  Report Type: Spontaneous
  Country: CN (occurrence: CN)
  Receive Date: 20230612
  Receipt Date: 20230612
  Transmission Date: 20230721
  Serious: Yes (Hospitalization)
  Sender: FDA-Public Use
  Company Number: CN-002147023-NVSC2023CN133050

PATIENT
  Age: 69 Year
  Sex: Male

DRUGS (2)
  1. TEGRETOL [Suspect]
     Active Substance: CARBAMAZEPINE
     Indication: Epilepsy
     Dosage: 0.2 G, TID
     Route: 048
     Dates: start: 20230424, end: 20230516
  2. TEGRETOL [Suspect]
     Active Substance: CARBAMAZEPINE
     Indication: Periarthritis

REACTIONS (7)
  - Drug eruption [Recovering/Resolving]
  - Rash [Recovering/Resolving]
  - Pruritus [Recovering/Resolving]
  - Oedema [Unknown]
  - Macule [Unknown]
  - Papule [Unknown]
  - Condition aggravated [Unknown]

NARRATIVE: CASE EVENT DATE: 20230506
